FAERS Safety Report 6275822-5 (Version None)
Quarter: 2009Q3

REPORT INFORMATION
  Report Type: 
  Country: None (occurrence: None)
  Receive Date: 20090717
  Receipt Date: 20090710
  Transmission Date: 20100115
  Serious: Yes (Other)
  Sender: FDA-Public Use
  Company Number: ADR8572009 (MHRA ADR NO.: ADR 20453304-001)

PATIENT
  Age: 23 Year
  Sex: Female

DRUGS (3)
  1. SERTRALINE [Suspect]
     Indication: DEPRESSION
     Dosage: 50 MG ORAL
     Route: 048
     Dates: start: 20090521, end: 20090616
  2. SERTRALINE [Suspect]
     Indication: OBSESSIVE-COMPULSIVE DISORDER
     Dosage: 50 MG ORAL
     Route: 048
     Dates: start: 20090521, end: 20090616
  3. PARACETAMOL [Concomitant]

REACTIONS (3)
  - HYPERHIDROSIS [None]
  - SENSORY DISTURBANCE [None]
  - TACHYCARDIA [None]
